FAERS Safety Report 7064379-7 (Version None)
Quarter: 2010Q4

REPORT INFORMATION
  Report Type: 
  Country: None (occurrence: None)
  Receive Date: 20101027
  Receipt Date: 20101021
  Transmission Date: 20110411
  Serious: Yes (Other)
  Sender: FDA-Public Use
  Company Number: TN-BRISTOL-MYERS SQUIBB COMPANY-15339773

PATIENT
  Age: 59 Year
  Sex: Female

DRUGS (2)
  1. COAPROVEL [Suspect]
     Indication: HYPERTENSION
     Dosage: 1DF:300/12.5MG
     Dates: start: 20091201
  2. SECTRAL [Concomitant]
     Indication: HYPERTENSION

REACTIONS (1)
  - LICHENOID KERATOSIS [None]
